FAERS Safety Report 20023807 (Version 2)
Quarter: 2021Q4

REPORT INFORMATION
  Report Type: Spontaneous
  Country: CA (occurrence: CA)
  Receive Date: 20211102
  Receipt Date: 20211124
  Transmission Date: 20220303
  Serious: Yes (Hospitalization, Other)
  Sender: FDA-Public Use
  Company Number: CA-GLAXOSMITHKLINE-CA2021178239

PATIENT
  Age: 64 Year
  Sex: Female

DRUGS (6)
  1. ZEJULA [Suspect]
     Active Substance: NIRAPARIB
     Indication: Ovarian epithelial cancer
     Dosage: 200 MG, QD
     Route: 048
     Dates: start: 20210420
  2. ZEJULA [Suspect]
     Active Substance: NIRAPARIB
     Indication: Fallopian tube cancer
     Dosage: 100 MG, QD
     Route: 048
     Dates: end: 20210809
  3. ZEJULA [Suspect]
     Active Substance: NIRAPARIB
     Indication: Malignant peritoneal neoplasm
     Dosage: 100 MG, QD
     Route: 048
     Dates: start: 20210830
  4. HERBALS\TURMERIC [Concomitant]
     Active Substance: HERBALS\TURMERIC
     Indication: Supplementation therapy
     Dosage: UNK
     Dates: start: 20210810
  5. BLACK SEED OIL [Concomitant]
     Indication: Supplementation therapy
     Dosage: UNK
     Dates: start: 20210810
  6. GINGER [Concomitant]
     Active Substance: GINGER
     Indication: Supplementation therapy
     Dosage: UNK
     Dates: start: 20210810

REACTIONS (9)
  - Urinary tract infection [Unknown]
  - Recurrent cancer [Not Recovered/Not Resolved]
  - Lymphadenopathy [Not Recovered/Not Resolved]
  - Malaise [Recovering/Resolving]
  - Palpitations [Recovering/Resolving]
  - Neutrophil count decreased [Recovered/Resolved]
  - Back pain [Unknown]
  - Gait disturbance [Unknown]
  - Pain [Unknown]

NARRATIVE: CASE EVENT DATE: 20210801
